FAERS Safety Report 21378879 (Version 1)
Quarter: 2022Q3

REPORT INFORMATION
  Report Type: Spontaneous
  Country: US (occurrence: US)
  Receive Date: 20220927
  Receipt Date: 20220927
  Transmission Date: 20221026
  Serious: No
  Sender: FDA-Public Use
  Company Number: US-GSKCCFUS-Case-01502939_AE-85496

PATIENT
  Age: 65 Year
  Sex: Male

DRUGS (1)
  1. NUCALA [Suspect]
     Active Substance: MEPOLIZUMAB
     Indication: Nasal polyps
     Dosage: UNK
     Route: 058
     Dates: start: 202008

REACTIONS (5)
  - Exposure via skin contact [Unknown]
  - Wrong technique in device usage process [Recovered/Resolved]
  - Accidental exposure to product [Unknown]
  - Product dose omission issue [Not Recovered/Not Resolved]
  - Off label use [Unknown]

NARRATIVE: CASE EVENT DATE: 20200801
